FAERS Safety Report 7777868-4 (Version None)
Quarter: 2011Q3

REPORT INFORMATION
  Report Type: 
  Country: None (occurrence: None)
  Receive Date: 20110926
  Receipt Date: 20110916
  Transmission Date: 20111222
  Serious: No
  Sender: FDA-Public Use
  Company Number: US-BIOGENIDEC-2011BI035839

PATIENT
  Age: 45 Year
  Sex: Female

DRUGS (1)
  1. TYSABRI [Suspect]
     Indication: MULTIPLE SCLEROSIS
     Route: 042
     Dates: start: 20100928

REACTIONS (7)
  - SENSATION OF HEAVINESS [None]
  - COORDINATION ABNORMAL [None]
  - MUSCULOSKELETAL STIFFNESS [None]
  - ACTIVITIES OF DAILY LIVING IMPAIRED [None]
  - FLUID INTAKE REDUCED [None]
  - PAIN IN EXTREMITY [None]
  - EATING DISORDER [None]
